FAERS Safety Report 10239059 (Version 3)
Quarter: 2014Q3

REPORT INFORMATION
  Report Type: Spontaneous
  Country: HU (occurrence: HU)
  Receive Date: 20140616
  Receipt Date: 20140708
  Transmission Date: 20150326
  Serious: Yes (Hospitalization)
  Sender: FDA-Public Use
  Company Number: HU-PFIZER INC-2014160660

PATIENT
  Age: 40 Year
  Sex: Female

DRUGS (2)
  1. BISOBLOCK [Concomitant]
     Indication: HYPERTENSION
     Dosage: UNK
  2. SUTENT [Suspect]
     Active Substance: SUNITINIB MALATE
     Indication: RENAL CANCER METASTATIC
     Dosage: 50 MG, 1X/DAY
     Route: 048
     Dates: start: 2013

REACTIONS (1)
  - Anal abscess [Recovered/Resolved]
